FAERS Safety Report 11324762 (Version 1)
Quarter: 2015Q3

REPORT INFORMATION
  Report Type: Report from Study
  Country: US (occurrence: US)
  Receive Date: 20150730
  Receipt Date: 20150730
  Transmission Date: 20151125
  Serious: Yes (Other)
  Sender: FDA-Public Use
  Company Number: US-REGENERON PHARMACEUTICALS, INC.-2015-11822

PATIENT

DRUGS (1)
  1. EYLEA [Suspect]
     Active Substance: AFLIBERCEPT
     Indication: MACULAR DEGENERATION
     Dosage: FIRST INJECTION OD
     Route: 031
     Dates: start: 20150716

REACTIONS (9)
  - Eye pain [Recovered/Resolved]
  - Drug ineffective [Unknown]
  - Rhinorrhoea [Recovered/Resolved]
  - Eye haemorrhage [Recovered/Resolved]
  - Lacrimation increased [Recovered/Resolved]
  - Pyrexia [Unknown]
  - Eye swelling [Not Recovered/Not Resolved]
  - Rash pruritic [Unknown]
  - Insomnia [Unknown]

NARRATIVE: CASE EVENT DATE: 20150716
